FAERS Safety Report 8695253 (Version 3)
Quarter: 2013Q1

REPORT INFORMATION
  Report Type: Spontaneous
  Country: KR (occurrence: None)
  Receive Date: 20120713
  Receipt Date: 20130201
  Transmission Date: 20140127
  Serious: Yes (Other)
  Sender: FDA-Public Use
  Company Number: JP-2012-15688

PATIENT
  Age: 59 Year
  Sex: Male

DRUGS (2)
  1. CILOSTAZOL [Suspect]
     Indication: CEREBRAL ARTERY STENOSIS
     Dosage: ORAL
     Route: 048
     Dates: start: 20110822
  2. LIPILOU (ATORVASTATIN CALCIUM ANHYDROUS) [Concomitant]

REACTIONS (2)
  - Cerebral artery occlusion [None]
  - Condition aggravated [None]
